FAERS Safety Report 16229872 (Version 2)
Quarter: 2019Q2

REPORT INFORMATION
  Report Type: Spontaneous
  Country: DE (occurrence: DE)
  Receive Date: 20190423
  Receipt Date: 20190423
  Transmission Date: 20190711
  Serious: Yes (Other)
  Sender: FDA-Public Use
  Company Number: DE-BAYER-2019-079217

PATIENT
  Age: 19 Year
  Sex: Female

DRUGS (1)
  1. QLAIRA FILMTABLETTEN [Suspect]
     Active Substance: DIENOGEST\ESTRADIOL VALERATE
     Indication: CONTRACEPTION
     Dosage: 1 DF, QD
     Route: 048
     Dates: start: 201804, end: 201901

REACTIONS (6)
  - Retained products of conception [None]
  - Drug ineffective [None]
  - Dizziness [None]
  - Pregnancy on oral contraceptive [None]
  - Treatment noncompliance [None]
  - Nausea [None]

NARRATIVE: CASE EVENT DATE: 201808
